FAERS Safety Report 25132632 (Version 1)
Quarter: 2025Q1

REPORT INFORMATION
  Report Type: Spontaneous
  Country: DE (occurrence: DE)
  Receive Date: 20250328
  Receipt Date: 20250328
  Transmission Date: 20250408
  Serious: Yes (Hospitalization)
  Sender: SANDOZ
  Company Number: DE-AMGEN-DEUSP2025048590

PATIENT
  Age: 72 Year
  Sex: Female

DRUGS (12)
  1. FULVESTRANT [Suspect]
     Active Substance: FULVESTRANT
     Indication: Breast cancer
     Route: 030
     Dates: start: 20210317
  2. PALBOCICLIB [Suspect]
     Active Substance: PALBOCICLIB
     Indication: Breast cancer
     Route: 048
     Dates: start: 20210325
  3. XGEVA [Suspect]
     Active Substance: DENOSUMAB
     Dosage: 120 MG, Q4W
     Route: 058
     Dates: start: 20250115
  4. XGEVA [Suspect]
     Active Substance: DENOSUMAB
     Indication: Prophylaxis
     Route: 058
     Dates: start: 20210317, end: 20230530
  5. XGEVA [Suspect]
     Active Substance: DENOSUMAB
     Route: 058
     Dates: start: 20230822, end: 20240827
  6. ASPIRIN [Concomitant]
     Active Substance: ASPIRIN
     Indication: Prophylaxis
     Route: 048
  7. CHOLECALCIFEROL [Concomitant]
     Active Substance: CHOLECALCIFEROL
     Indication: Prophylaxis
     Route: 048
  8. Helixor [Concomitant]
     Indication: Prophylaxis
     Route: 058
     Dates: start: 20230406
  9. INSULIN NOS [Concomitant]
     Active Substance: INSULIN NOS
     Indication: Product used for unknown indication
     Route: 058
     Dates: start: 20230628
  10. LEVOTHYROXINE SODIUM [Concomitant]
     Active Substance: LEVOTHYROXINE SODIUM
     Indication: Hypothyroidism
     Route: 048
  11. ROSUVASTATIN [Concomitant]
     Active Substance: ROSUVASTATIN
     Indication: Hyperchloraemia
     Route: 048
  12. VALSARTAN [Concomitant]
     Active Substance: VALSARTAN
     Indication: Essential hypertension
     Route: 065

REACTIONS (1)
  - Osteonecrosis of jaw [Recovered/Resolved]

NARRATIVE: CASE EVENT DATE: 20250204
